FAERS Safety Report 5755935-4 (Version None)
Quarter: 2008Q2

REPORT INFORMATION
  Report Type: 
  Country: None (occurrence: None)
  Receive Date: 20080602
  Receipt Date: 20080501
  Transmission Date: 20081010
  Serious: No
  Sender: FDA-Public Use
  Company Number: US-BAYER-200713718BCC

PATIENT
  Age: 33 Year
  Sex: Female
  Weight: 57 kg

DRUGS (2)
  1. MIDOL [Suspect]
     Indication: MOOD ALTERED
     Route: 048
     Dates: start: 20071019
  2. PLAN B [Concomitant]
     Dates: start: 20071013

REACTIONS (4)
  - DIZZINESS [None]
  - FATIGUE [None]
  - NAUSEA [None]
  - POLYMENORRHOEA [None]
